FAERS Safety Report 11685332 (Version 1)
Quarter: 2015Q4

REPORT INFORMATION
  Report Type: Spontaneous
  Country: US (occurrence: None)
  Receive Date: 20151029
  Receipt Date: 20151029
  Transmission Date: 20160304
  Serious: No
  Sender: FDA-Public Use
  Company Number: None

PATIENT
  Age: 64 Year
  Sex: Male

DRUGS (6)
  1. METRONIDAZOLE. [Concomitant]
     Active Substance: METRONIDAZOLE
  2. SUTENT [Suspect]
     Active Substance: SUNITINIB MALATE
     Indication: NEOPLASM MALIGNANT
     Dosage: QD 4 WEEKS ON  2 W OFF
     Route: 048
     Dates: start: 201509
  3. OMEPRAZOLE. [Concomitant]
     Active Substance: OMEPRAZOLE
  4. OXYCODONE [Concomitant]
     Active Substance: OXYCODONE
  5. AMOXICILLIN. [Concomitant]
     Active Substance: AMOXICILLIN
  6. CIPROFLOXACIN. [Concomitant]
     Active Substance: CIPROFLOXACIN

REACTIONS (4)
  - Dysgeusia [None]
  - Vision blurred [None]
  - Diarrhoea [None]
  - Asthenia [None]

NARRATIVE: CASE EVENT DATE: 201509
